FAERS Safety Report 5131290-8 (Version None)
Quarter: 2006Q4

REPORT INFORMATION
  Report Type: 
  Country: None (occurrence: None)
  Receive Date: 20061016
  Receipt Date: 20060823
  Transmission Date: 20070319
  Serious: Yes (Death, Life-Threatening, Hospitalization)
  Sender: FDA-Public Use
  Company Number: 2006061473

PATIENT
  Age: 77 Year
  Sex: Female

DRUGS (10)
  1. BEXTRA [Suspect]
     Indication: RHEUMATOID ARTHRITIS
     Dosage: 20 MG (20 MG, I IN 1 D)
     Dates: start: 20020726, end: 20050201
  2. MEDROL [Concomitant]
  3. CELECOXIB (CELECOXIB) [Concomitant]
  4. PROCARDIA [Concomitant]
  5. PREVACID [Concomitant]
  6. PLAQUENIL (HYDROXYCHLORIDE PHOSPHATE) [Concomitant]
  7. NIFEREX (POLYSACCHARIDE-IRON COMPLEX) [Concomitant]
  8. LASIX [Concomitant]
  9. DARVOCET [Concomitant]
  10. SALBUTAMOL (SALBUTAMOL) [Concomitant]

REACTIONS (13)
  - ANAEMIA [None]
  - CARDIAC ARREST [None]
  - CARDIOMEGALY [None]
  - CELLULITIS [None]
  - CEREBRAL INFARCTION [None]
  - MENTAL STATUS CHANGES [None]
  - MYOCARDIAL INFARCTION [None]
  - PERIPHERAL ARTERIAL OCCLUSIVE DISEASE [None]
  - RESPIRATORY ARREST [None]
  - TACHYCARDIA [None]
  - VASCULAR CALCIFICATION [None]
  - VASCULAR PSEUDOANEURYSM [None]
  - WOUND INFECTION [None]
